FAERS Safety Report 22040732 (Version 2)
Quarter: 2023Q2

REPORT INFORMATION
  Report Type: Spontaneous
  Country: PH (occurrence: PH)
  Receive Date: 20230227
  Receipt Date: 20230409
  Transmission Date: 20230722
  Serious: Yes (Other)
  Sender: FDA-Public Use
  Company Number: PH-BoehringerIngelheim-2023-BI-220093

PATIENT
  Age: 78 Year
  Sex: Male
  Weight: 85 kg

DRUGS (8)
  1. OLODATEROL HYDROCHLORIDE\TIOTROPIUM BROMIDE MONOHYDRATE [Suspect]
     Active Substance: OLODATEROL HYDROCHLORIDE\TIOTROPIUM BROMIDE MONOHYDRATE
     Indication: Chronic obstructive pulmonary disease
     Dosage: 2.5/2.5MCG SOLUTION FOR INHALATION. 2 PUFFS AT LUNCH TIME
     Route: 055
     Dates: start: 20230113, end: 20230215
  2. AZEMAX [Concomitant]
     Indication: Antibiotic therapy
  3. AMVASC [Concomitant]
     Indication: Hypertension
     Route: 048
     Dates: start: 20230113
  4. TAMPLUS [Concomitant]
     Indication: Benign prostatic hyperplasia
     Dosage: 400MCG/5MG
     Route: 048
     Dates: start: 20230113
  5. VENTOLIN [Concomitant]
     Active Substance: ALBUTEROL SULFATE
     Indication: Chronic obstructive pulmonary disease
     Route: 055
     Dates: start: 20230113
  6. SYMBICORT [Concomitant]
     Active Substance: BUDESONIDE\FORMOTEROL FUMARATE DIHYDRATE
     Indication: Chronic obstructive pulmonary disease
     Dosage: 160/4.5
     Route: 055
     Dates: start: 20230113
  7. FLUIMUCIL [Concomitant]
     Active Substance: ACETYLCYSTEINE
     Indication: Chronic obstructive pulmonary disease
     Dosage: 1 TAB IN 50ML WATER IN THE MORNING
     Route: 048
     Dates: start: 20230113
  8. Vigel Cream [Concomitant]
     Indication: Product used for unknown indication

REACTIONS (1)
  - Blood creatinine increased [Unknown]

NARRATIVE: CASE EVENT DATE: 20230209
